FAERS Safety Report 7910548-0 (Version None)
Quarter: 2011Q4

REPORT INFORMATION
  Report Type: 
  Country: None (occurrence: None)
  Receive Date: 20111111
  Receipt Date: 20111028
  Transmission Date: 20120403
  Serious: Yes (Disabling)
  Sender: FDA-Public Use
  Company Number: PHHY2011JP82595

PATIENT
  Sex: Male
  Weight: 68 kg

DRUGS (22)
  1. PREDNISOLONE [Suspect]
     Dosage: 7.5 MG, UNK
     Route: 048
     Dates: start: 20111011
  2. NEORAL [Suspect]
     Dosage: 50 MG, UNK
     Route: 048
     Dates: start: 20110824, end: 20110830
  3. BAKTAR [Concomitant]
     Dosage: UNK UKN, UNK
     Route: 048
  4. OLMESARTAN MEDOXOMIL [Concomitant]
     Dosage: UNK UKN, UNK
     Route: 048
  5. ALENDRONATE SODIUM [Concomitant]
     Dosage: 5 MG, UNK
     Route: 048
  6. FAMOTIDINE [Concomitant]
     Dosage: UNK UKN, UNK
     Route: 048
  7. PREDNISOLONE [Suspect]
     Dosage: 35 MG, UNK
     Route: 048
     Dates: start: 20110817, end: 20110830
  8. CARNACULIN [Concomitant]
     Dosage: UNK UKN, UNK
  9. PREDNISOLONE [Concomitant]
     Dosage: 20 MG, UNK
  10. PREDNISOLONE [Concomitant]
     Dosage: 15 MG, UNK
     Dates: start: 20110928
  11. SOLU-CORTEF [Concomitant]
     Dosage: 1000 MG, DAILY
     Dates: start: 20110716
  12. PREDNISOLONE [Suspect]
     Dosage: 45 MG, UNK
     Route: 048
     Dates: start: 20110803
  13. PREDNISOLONE [Suspect]
     Dosage: 40 MG, UNK
     Route: 048
     Dates: start: 20110810
  14. PREDNISOLONE [Suspect]
     Dosage: 10 MG, UNK
     Route: 048
     Dates: start: 20110929
  15. PREDNISOLONE [Suspect]
     Dosage: 50 MG, UNK
     Route: 048
     Dates: start: 20110730
  16. PREDNISOLONE [Concomitant]
     Indication: GLOMERULONEPHRITIS MEMBRANOUS
     Dosage: 25 MG, UNK
     Dates: start: 20110831
  17. PREDNISOLONE [Suspect]
     Indication: GLOMERULONEPHRITIS MEMBRANOUS
     Dosage: 60 MG, UNK
     Route: 048
     Dates: start: 20110705
  18. PREDNISOLONE [Suspect]
     Dosage: 50 MG, UNK
     Route: 048
     Dates: start: 20110719, end: 20110726
  19. MECOBALAMIN [Concomitant]
     Dosage: UNK UKN, UNK
  20. LIPITOR [Concomitant]
     Dosage: UNK UKN, UNK
  21. NEORAL [Suspect]
     Indication: GLOMERULONEPHRITIS MEMBRANOUS
     Dosage: 125 MG, UNK
     Route: 048
     Dates: start: 20110803, end: 20110815
  22. ASPIRIN [Concomitant]
     Dosage: UNK UKN, UNK
     Route: 048

REACTIONS (8)
  - VISUAL ACUITY REDUCED [None]
  - ALTERED STATE OF CONSCIOUSNESS [None]
  - DIZZINESS [None]
  - MALAISE [None]
  - LOSS OF CONSCIOUSNESS [None]
  - VISION BLURRED [None]
  - CENTRAL NERVOUS SYSTEM LESION [None]
  - CONVULSION [None]
